FAERS Safety Report 4272927-5 (Version None)
Quarter: 2004Q1

REPORT INFORMATION
  Report Type: 
  Country: None (occurrence: None)
  Receive Date: 20040114
  Receipt Date: 20040105
  Transmission Date: 20041129
  Serious: Yes (Hospitalization)
  Sender: FDA-Public Use
  Company Number: 2004193453FR

PATIENT
  Age: 33 Year
  Sex: Male

DRUGS (2)
  1. SULFASALAZINE [Suspect]
     Dosage: 2G/DAY, ORAL
     Route: 048
     Dates: start: 20031003, end: 20031129
  2. FELDENE [Suspect]
     Dosage: 20 MG, ORAL
     Route: 048
     Dates: start: 20031003, end: 20031129

REACTIONS (12)
  - DYSPHAGIA [None]
  - HEPATITIS [None]
  - HEPATITIS B POSITIVE [None]
  - HYPERSENSITIVITY [None]
  - LYMPHADENOPATHY [None]
  - MUCOSAL INFLAMMATION [None]
  - PRURITUS [None]
  - PYREXIA [None]
  - RASH ERYTHEMATOUS [None]
  - SEBORRHOEIC DERMATITIS [None]
  - SPLENOMEGALY [None]
  - STOMATITIS [None]
